FAERS Safety Report 16808896 (Version 1)
Quarter: 2019Q3

REPORT INFORMATION
  Report Type: Spontaneous
  Country: US (occurrence: US)
  Receive Date: 20190724
  Receipt Date: 20190724
  Transmission Date: 20191005
  Serious: No
  Sender: FDA-Public Use
  Company Number: None

PATIENT
  Sex: Female
  Weight: 59.87 kg

DRUGS (12)
  1. IBANDRONATE TABLETS SODIUM [Suspect]
     Active Substance: IBANDRONATE SODIUM
     Indication: OSTEOPOROSIS
     Dosage: ?          QUANTITY:1 PILL;?
     Route: 048
     Dates: start: 20190617, end: 20190617
  2. CALCIUM [Concomitant]
     Active Substance: CALCIUM
  3. MULTI-VIT [Concomitant]
     Active Substance: VITAMINS
  4. LORAZAPAM [Concomitant]
     Active Substance: LORAZEPAM
  5. VITAMIN C [Concomitant]
     Active Substance: ASCORBIC ACID
  6. BIOTIN [Concomitant]
     Active Substance: BIOTIN
  7. RED RICE YEAST [Concomitant]
     Active Substance: DIETARY SUPPLEMENT
  8. ZANTAC [Suspect]
     Active Substance: RANITIDINE HYDROCHLORIDE
  9. METOPROLOL. [Concomitant]
     Active Substance: METOPROLOL
  10. MAGNESIUM [Concomitant]
     Active Substance: MAGNESIUM
  11. B6 [Concomitant]
     Active Substance: PYRIDOXINE HYDROCHLORIDE
  12. FISH OIL [Concomitant]
     Active Substance: FISH OIL

REACTIONS (2)
  - Adverse reaction [None]
  - Malaise [None]
